FAERS Safety Report 8515947 (Version 3)
Quarter: 2012Q4

REPORT INFORMATION
  Report Type: 
  Country: JP (occurrence: JP)
  Receive Date: 20120417
  Receipt Date: 20121123
  Transmission Date: 20130627
  Serious: Yes (Hospitalization)
  Sender: FDA-Public Use
  Company Number: PHHY2012JP031139

PATIENT
  Age: 71 Year
  Sex: Male
  Weight: 50 kg

DRUGS (14)
  1. AFINITOR [Suspect]
     Dosage: 10 mg, daily
     Route: 048
     Dates: start: 20111214, end: 20120221
  2. AFINITOR [Suspect]
     Dosage: 5 mg, daily
     Route: 048
     Dates: start: 20120321, end: 20120406
  3. AFINITOR [Suspect]
     Dosage: 5 mg, daily
     Route: 048
     Dates: start: 20120419, end: 20120512
  4. AFINITOR [Suspect]
     Dosage: 5 mg, daily
     Route: 048
     Dates: start: 20120606
  5. SANDOSTATIN [Concomitant]
     Indication: PANCREATIC NEUROENDOCRINE TUMOUR
     Dosage: 150 mg, UNK
     Route: 058
     Dates: start: 20111118, end: 20111212
  6. SANDOSTATIN LAR [Concomitant]
     Indication: PANCREATIC NEUROENDOCRINE TUMOUR
     Dosage: UNK
     Route: 030
     Dates: start: 20111202
  7. GASMOTIN [Concomitant]
     Dosage: 5 mg, UNK
     Route: 050
  8. ZANTAC [Concomitant]
     Dosage: 150 mg, UNK
     Route: 048
  9. MAGMITT [Concomitant]
     Dosage: 660 mg, UNK
     Route: 048
  10. AMLODIN [Concomitant]
     Dosage: 5 mg, UNK
     Route: 048
  11. PURSENNIDE [Concomitant]
     Dosage: 72 mg, UNK
     Route: 048
  12. DEPAS [Concomitant]
     Dosage: 0.5 mg, UNK
     Route: 048
  13. BAKTAR [Concomitant]
     Indication: PROPHYLAXIS
     Dosage: UNK
     Route: 048
     Dates: start: 20120227
  14. MONOMYCIN [Concomitant]
     Indication: PROPHYLAXIS
     Dosage: 200 mg, UNK
     Route: 048
     Dates: start: 20120606

REACTIONS (4)
  - C-reactive protein increased [Recovering/Resolving]
  - Pyrexia [Recovered/Resolved]
  - Infection [Recovering/Resolving]
  - Pyelonephritis [Recovering/Resolving]
